FAERS Safety Report 16219892 (Version 7)
Quarter: 2020Q1

REPORT INFORMATION
  Report Type: Spontaneous
  Country: DE (occurrence: DE)
  Receive Date: 20190420
  Receipt Date: 20200220
  Transmission Date: 20200409
  Serious: Yes (Hospitalization, Other)
  Sender: FDA-Public Use
  Company Number: DE-AUROBINDO-AUR-APL-2019-021352

PATIENT
  Sex: Female
  Weight: 67 kg

DRUGS (11)
  1. ANASTROZOLE. [Suspect]
     Active Substance: ANASTROZOLE
     Indication: BREAST CANCER METASTATIC
     Dosage: 1 MILLIGRAM, ONCE A DAY
     Route: 048
     Dates: start: 20181025
  2. KISQALI [Suspect]
     Active Substance: RIBOCICLIB
     Indication: BREAST CANCER METASTATIC
     Dosage: 600 MG, QD,ONCE A DAY
     Route: 048
     Dates: start: 20181025, end: 20181114
  3. AMLODIPINE [Suspect]
     Active Substance: AMLODIPINE BESYLATE
     Indication: CARDIAC DISORDER
     Dosage: 5 MILLIGRAM, ONCE A DAY
     Route: 048
     Dates: start: 20190219
  4. BISOPROLOL [Suspect]
     Active Substance: BISOPROLOL
     Indication: CARDIAC DISORDER
     Dosage: 1.25 MILLIGRAM, ONCE A DAY
     Route: 048
     Dates: start: 20190219
  5. BISOPROLOL [Suspect]
     Active Substance: BISOPROLOL
     Indication: CARDIOVASCULAR DISORDER
  6. KISQALI [Suspect]
     Active Substance: RIBOCICLIB
     Dosage: 400 MILLIGRAM, QD ONCE A DAY
     Route: 048
     Dates: start: 20190111, end: 20190208
  7. AMLODIPINE [Suspect]
     Active Substance: AMLODIPINE BESYLATE
     Indication: CARDIOVASCULAR DISORDER
  8. KISQALI [Suspect]
     Active Substance: RIBOCICLIB
     Dosage: 400 MILLIGRAM,QD,ONCE A DAY
     Route: 048
     Dates: start: 20181129, end: 20181218
  9. KISQALI [Suspect]
     Active Substance: RIBOCICLIB
     Dosage: 400 MILLIGRAM, ONCE A DAY
     Route: 048
     Dates: start: 20181219, end: 20190103
  10. VOMEX A [Concomitant]
     Active Substance: DIMENHYDRINATE
     Indication: GASTROINTESTINAL DISORDER
     Dosage: UNK
     Route: 048
     Dates: start: 20190226, end: 20190328
  11. VOMEX A [Concomitant]
     Active Substance: DIMENHYDRINATE
     Dosage: UNK
     Route: 048
     Dates: start: 20190328

REACTIONS (6)
  - Syncope [Recovering/Resolving]
  - Weight decreased [Unknown]
  - Lacrimation increased [Not Recovered/Not Resolved]
  - Abdominal pain lower [Recovering/Resolving]
  - Circulatory collapse [Recovered/Resolved]
  - Constipation [Recovering/Resolving]

NARRATIVE: CASE EVENT DATE: 20190213
